FAERS Safety Report 16181653 (Version 1)
Quarter: 2019Q2

REPORT INFORMATION
  Report Type: Spontaneous
  Country: GB (occurrence: GB)
  Receive Date: 20190410
  Receipt Date: 20190410
  Transmission Date: 20190711
  Serious: Yes (Hospitalization, Other)
  Sender: FDA-Public Use
  Company Number: GB-MYLANLABS-2019M1034453

PATIENT
  Age: 35 Year
  Sex: Female

DRUGS (4)
  1. RENNIE PEPPERMINT [Concomitant]
     Indication: GASTROOESOPHAGEAL REFLUX DISEASE
     Dosage: 72 TABLETS
     Route: 048
  2. IBUPROFEN. [Suspect]
     Active Substance: IBUPROFEN
     Indication: BACK PAIN
     Route: 048
  3. PARACETAMOL [Suspect]
     Active Substance: ACETAMINOPHEN
     Indication: BACK PAIN
     Route: 048
  4. GAVISCON [Concomitant]
     Active Substance: ALUMINUM HYDROXIDE\MAGNESIUM CARBONATE
     Indication: GASTROOESOPHAGEAL REFLUX DISEASE
     Dosage: FORMULATION: LIQUID; 80MG OF CALCIUM CARBONATE PER 5ML
     Route: 048

REACTIONS (3)
  - Gastric ulcer [Recovered/Resolved]
  - Drug abuse [Recovered/Resolved]
  - Overdose [Recovered/Resolved]
